FAERS Safety Report 18677102 (Version 1)
Quarter: 2020Q4

REPORT INFORMATION
  Report Type: Spontaneous
  Country: US (occurrence: US)
  Receive Date: 20201229
  Receipt Date: 20201229
  Transmission Date: 20210114
  Serious: No
  Sender: FDA-Public Use
  Company Number: US-009507513-2012USA005831

PATIENT
  Age: 36 Year
  Sex: Female

DRUGS (6)
  1. LEUPROLIDE [Concomitant]
     Active Substance: LEUPROLIDE
  2. FOLLISTIM [Suspect]
     Active Substance: FOLLITROPIN
     Indication: INFERTILITY FEMALE
     Dosage: STRENGTH : 900 UNIT / 1.08 ML, 225 UNITS PER DAY, AS DIRECTED
     Route: 058
     Dates: start: 20200205
  3. ESTRADIOL. [Concomitant]
     Active Substance: ESTRADIOL
  4. GANIRELIX ACETATE INJECTION [Concomitant]
     Active Substance: GANIRELIX ACETATE
  5. AZITHROMYCIN ANHYDROUS. [Concomitant]
     Active Substance: AZITHROMYCIN ANHYDROUS
  6. PROGESTERONE. [Concomitant]
     Active Substance: PROGESTERONE
     Dosage: 50 MG/ML

REACTIONS (1)
  - Abnormal dreams [Unknown]
